FAERS Safety Report 5336884-2 (Version None)
Quarter: 2007Q2

REPORT INFORMATION
  Report Type: 
  Country: None (occurrence: None)
  Receive Date: 20070524
  Receipt Date: 20070524
  Transmission Date: 20071010
  Serious: Yes (Other)
  Sender: FDA-Public Use
  Company Number: None

PATIENT
  Age: 30 Year
  Sex: Female
  Weight: 77.1115 kg

DRUGS (1)
  1. PAXIL [Suspect]
     Indication: DEATH OF RELATIVE
     Dosage: 1 SID SID PO
     Route: 048
     Dates: start: 20020628, end: 20070501

REACTIONS (15)
  - AMNESIA [None]
  - CHRONIC FATIGUE SYNDROME [None]
  - CONFUSIONAL STATE [None]
  - CRYING [None]
  - DEPRESSION [None]
  - DIZZINESS [None]
  - DRUG INEFFECTIVE [None]
  - DRUG WITHDRAWAL SYNDROME [None]
  - EPSTEIN-BARR VIRUS INFECTION [None]
  - HEADACHE [None]
  - INSOMNIA [None]
  - MIGRAINE [None]
  - PRURITUS [None]
  - TREATMENT NONCOMPLIANCE [None]
  - VOMITING [None]
